FAERS Safety Report 16252748 (Version 1)
Quarter: 2019Q2

REPORT INFORMATION
  Report Type: Spontaneous
  Country: IT (occurrence: IT)
  Receive Date: 20190429
  Receipt Date: 20190429
  Transmission Date: 20190711
  Serious: Yes (Hospitalization, Other)
  Sender: FDA-Public Use
  Company Number: IT-JNJFOC-20190410387

PATIENT
  Age: 88 Year
  Sex: Female

DRUGS (1)
  1. XARELTO [Suspect]
     Active Substance: RIVAROXABAN
     Indication: ATRIAL FIBRILLATION
     Route: 048
     Dates: end: 201903

REACTIONS (7)
  - Haemorrhagic pneumonia [Unknown]
  - Haemoptysis [Unknown]
  - Platelet count decreased [Recovering/Resolving]
  - Haemorrhagic pneumonia [Unknown]
  - Antinuclear antibody positive [Unknown]
  - Antineutrophil cytoplasmic antibody positive [Unknown]
  - Petechiae [Unknown]

NARRATIVE: CASE EVENT DATE: 201903
